FAERS Safety Report 6039950-1 (Version None)
Quarter: 2009Q1

REPORT INFORMATION
  Report Type: 
  Country: None (occurrence: None)
  Receive Date: 20090116
  Receipt Date: 20071122
  Transmission Date: 20090719
  Serious: No
  Sender: FDA-Public Use
  Company Number: US-BRISTOL-MYERS SQUIBB COMPANY-13960570

PATIENT
  Age: 59 Year
  Sex: Female
  Weight: 122 kg

DRUGS (8)
  1. ABILIFY [Suspect]
     Indication: BIPOLAR DISORDER
     Dates: start: 20071026, end: 20071026
  2. ASPIRIN [Concomitant]
  3. DEPAKOTE [Concomitant]
  4. LEVOTHYROXINE SODIUM [Concomitant]
  5. LITHIUM CARBONATE [Concomitant]
  6. FISH OIL [Concomitant]
  7. RANITIDINE [Concomitant]
  8. DIAZEPAM [Concomitant]

REACTIONS (2)
  - BALANCE DISORDER [None]
  - MANIA [None]
